FAERS Safety Report 5190686-9 (Version None)
Quarter: 2006Q4

REPORT INFORMATION
  Report Type: 
  Country: None (occurrence: None)
  Receive Date: 20061222
  Receipt Date: 20061129
  Transmission Date: 20070319
  Serious: No
  Sender: FDA-Public Use
  Company Number: US-BRISTOL-MYERS SQUIBB COMPANY-13596267

PATIENT
  Age: 52 Year
  Sex: Female
  Weight: 130 kg

DRUGS (5)
  1. ORENCIA [Suspect]
     Indication: RHEUMATOID ARTHRITIS
     Route: 042
     Dates: start: 20061111
  2. SULFASALAZINE [Concomitant]
  3. CELLCEPT [Concomitant]
  4. SINGULAIR [Concomitant]
  5. LYRICA [Concomitant]

REACTIONS (2)
  - INFLUENZA LIKE ILLNESS [None]
  - PAIN IN EXTREMITY [None]
